FAERS Safety Report 5398229-1 (Version None)
Quarter: 2007Q3

REPORT INFORMATION
  Report Type: 
  Country: None (occurrence: None)
  Receive Date: 20070724
  Receipt Date: 20070717
  Transmission Date: 20080115
  Serious: Yes (Hospitalization)
  Sender: FDA-Public Use
  Company Number: 2007BI010724

PATIENT
  Age: 33 Year
  Sex: Female
  Weight: 68.0396 kg

DRUGS (7)
  1. AVONEX [Suspect]
     Indication: MULTIPLE SCLEROSIS
     Dosage: 30 UG;QW;IM
     Route: 030
     Dates: start: 20070410, end: 20070501
  2. NEURONTIN [Concomitant]
  3. NAPROXEN [Concomitant]
  4. PROTONIX [Concomitant]
  5. SENNA [Concomitant]
  6. MV [Concomitant]
  7. IRON [Concomitant]

REACTIONS (3)
  - DEPRESSION [None]
  - INFLUENZA LIKE ILLNESS [None]
  - VOMITING [None]
